FAERS Safety Report 12272346 (Version 1)
Quarter: 2016Q2

REPORT INFORMATION
  Report Type: Spontaneous
  Country: GB (occurrence: GB)
  Receive Date: 20160415
  Receipt Date: 20160415
  Transmission Date: 20160815
  Serious: Yes (Other)
  Sender: FDA-Public Use
  Company Number: GB-JNJFOC-20160412786

PATIENT
  Age: 74 Year
  Sex: Female
  Weight: 80.73 kg

DRUGS (2)
  1. INSULIN [Concomitant]
     Active Substance: INSULIN NOS
     Route: 065
  2. CANAGLIFLOZIN [Suspect]
     Active Substance: CANAGLIFLOZIN
     Indication: HYPERGLYCAEMIA
     Dosage: 100 (UNITS UNSPECIFIED)
     Route: 048
     Dates: start: 20160304, end: 20160311

REACTIONS (8)
  - Cellulitis [Recovering/Resolving]
  - Alopecia [Recovering/Resolving]
  - Peripheral swelling [Recovering/Resolving]
  - Rash pruritic [Recovering/Resolving]
  - Candida infection [Recovering/Resolving]
  - Blister [Recovering/Resolving]
  - Blindness unilateral [Recovering/Resolving]
  - Malaise [Recovering/Resolving]

NARRATIVE: CASE EVENT DATE: 20160304
